FAERS Safety Report 8986580 (Version 1)
Quarter: 2012Q4

REPORT INFORMATION
  Report Type: 
  Country: JP (occurrence: JP)
  Receive Date: 20121226
  Receipt Date: 20121226
  Transmission Date: 20130627
  Serious: Yes (Other)
  Sender: FDA-Public Use
  Company Number: JP-ROCHE-1173882

PATIENT

DRUGS (1)
  1. XELODA [Suspect]
     Indication: LARGE INTESTINE CARCINOMA
     Route: 048
     Dates: start: 20121126, end: 20121207

REACTIONS (1)
  - Biliary colic [Recovering/Resolving]
